FAERS Safety Report 8770970 (Version 2)
Quarter: 2012Q4

REPORT INFORMATION
  Report Type: 
  Country: FR (occurrence: FR)
  Receive Date: 20120906
  Receipt Date: 20120911
  Transmission Date: 20130627
  Serious: Yes (Hospitalization, Other)
  Sender: FDA-Public Use
  Company Number: FR-PFIZER INC-2012214619

PATIENT
  Age: 64 Year
  Sex: Male

DRUGS (6)
  1. TAHOR [Suspect]
     Dosage: UNK
  2. SINTROM [Interacting]
     Dosage: UNK
     Dates: end: 20111018
  3. ZYLORIC [Interacting]
     Dosage: UNK
  4. CALCIPARINE [Suspect]
     Dosage: UNK
     Dates: start: 20111018
  5. BISOCE [Concomitant]
     Dosage: UNK
  6. NOVONORM [Concomitant]
     Dosage: UNK

REACTIONS (11)
  - Drug interaction [Unknown]
  - Rectal haemorrhage [Recovered/Resolved]
  - Red blood cell count decreased [Recovered/Resolved]
  - International normalised ratio abnormal [Unknown]
  - Anaemia [Recovering/Resolving]
  - Iron deficiency anaemia [Unknown]
  - Intestinal polyp [Unknown]
  - Gastritis [Unknown]
  - Chest pain [Unknown]
  - Varices oesophageal [None]
  - Large intestine polyp [None]
